FAERS Safety Report 9427025 (Version 1)
Quarter: 2013Q3

REPORT INFORMATION
  Report Type: Report from Study
  Country: US (occurrence: US)
  Receive Date: 20130730
  Receipt Date: 20130730
  Transmission Date: 20140515
  Serious: No
  Sender: FDA-Public Use
  Company Number: US-ABBOTT-12P-163-1003804-00

PATIENT
  Age: 48 Year
  Sex: Male

DRUGS (7)
  1. NIASPAN (COATED) [Suspect]
     Indication: BLOOD TRIGLYCERIDES INCREASED
     Dates: start: 20121007
  2. NIASPAN (COATED) [Suspect]
     Indication: BLOOD CHOLESTEROL INCREASED
  3. ALLOPURINOL [Concomitant]
     Indication: PRODUCT USED FOR UNKNOWN INDICATION
  4. GEMFIBROZEL [Concomitant]
     Indication: PRODUCT USED FOR UNKNOWN INDICATION
  5. ASA [Concomitant]
     Indication: PRODUCT USED FOR UNKNOWN INDICATION
  6. BENADRYL [Concomitant]
     Indication: PRODUCT USED FOR UNKNOWN INDICATION
  7. SIMVASTATIN [Concomitant]
     Indication: PRODUCT USED FOR UNKNOWN INDICATION

REACTIONS (2)
  - Blood potassium increased [Unknown]
  - Flushing [Recovered/Resolved]
